FAERS Safety Report 8764996 (Version 3)
Quarter: 2012Q4

REPORT INFORMATION
  Report Type: 
  Country: US (occurrence: US)
  Receive Date: 20120903
  Receipt Date: 20121121
  Transmission Date: 20130627
  Serious: Yes (Hospitalization, Disabling, Other)
  Sender: FDA-Public Use
  Company Number: US-009507513-1208USA011141

PATIENT
  Age: 47 None
  Sex: Male

DRUGS (8)
  1. PEGINTRON [Suspect]
     Indication: HEPATITIS C
     Dosage: 180 Microgram, qw
     Dates: start: 19980101, end: 19980213
  2. PEGINTRON [Suspect]
     Dosage: UNK
     Dates: start: 20010105, end: 20011102
  3. PEGINTRON [Suspect]
     Dosage: 180 Microgram, qw
     Dates: end: 20030101
  4. PEGINTRON [Suspect]
     Dosage: UNK
     Dates: start: 2005
  5. REBETOL [Suspect]
     Dosage: 2 DF, UNK
     Dates: start: 19980101, end: 19980213
  6. REBETOL [Suspect]
     Dosage: UNK
     Dates: start: 20010105, end: 20011102
  7. REBETOL [Suspect]
     Dosage: 2 DF, UNK
     Dates: end: 20030101
  8. REBETOL [Suspect]
     Dosage: UNK
     Dates: start: 2005

REACTIONS (8)
  - Blood bilirubin increased [Unknown]
  - Cough [Unknown]
  - Lethargy [Unknown]
  - Cough [Recovered/Resolved]
  - Drug ineffective [Unknown]
  - Pruritus [Unknown]
  - Pruritus [Unknown]
  - Hepatitis viral test positive [Unknown]
